FAERS Safety Report 5565045-7 (Version None)
Quarter: 2007Q4

REPORT INFORMATION
  Report Type: 
  Country: None (occurrence: None)
  Receive Date: 20071212
  Receipt Date: 20071204
  Transmission Date: 20080405
  Serious: Yes (Other)
  Sender: FDA-Public Use
  Company Number: 2007S1000293

PATIENT
  Sex: Male

DRUGS (2)
  1. SORIATANE [Suspect]
     Indication: TRANSIENT ACANTHOLYTIC DERMATOSIS
     Dosage: 25 MG;QD;PO
     Route: 048
  2. SORIATANE [Suspect]
     Indication: TRANSIENT ACANTHOLYTIC DERMATOSIS
     Dosage: 25 MG;QD;PO
     Route: 048
     Dates: start: 20071115

REACTIONS (4)
  - DISEASE RECURRENCE [None]
  - HEPATIC ENZYME INCREASED [None]
  - PANCREATITIS CHRONIC [None]
  - TRANSIENT ACANTHOLYTIC DERMATOSIS [None]
